FAERS Safety Report 6915430-3 (Version None)
Quarter: 2010Q3

REPORT INFORMATION
  Report Type: 
  Country: None (occurrence: None)
  Receive Date: 20100806
  Receipt Date: 20100806
  Transmission Date: 20110219
  Serious: Yes (Hospitalization)
  Sender: FDA-Public Use
  Company Number: None

PATIENT
  Sex: Male
  Weight: 57 kg

DRUGS (8)
  1. CYCLOPHOSPHAMIDE [Suspect]
     Dosage: 1660 MG
  2. CYTARABINE [Suspect]
     Dosage: 960 MG
  3. DEXAMETHASONE [Suspect]
     Dosage: 320 MG
  4. DOXORUBICIN HYDROCHLORIDE [Suspect]
     Dosage: 126 MG
  5. METHOTREXATE [Suspect]
     Dosage: 45 MG
  6. PEG-L-ASPARAGINASE (K-H) [Suspect]
     Dosage: 8250 UNIT
  7. THIOGUANINE [Suspect]
     Dosage: 560 MG
  8. VINCRISTINE SULFATE [Suspect]
     Dosage: 10 MG

REACTIONS (18)
  - BACTERIAL INFECTION [None]
  - CHILLS [None]
  - CULTURE STOOL POSITIVE [None]
  - DIARRHOEA [None]
  - DYSPHAGIA [None]
  - FATIGUE [None]
  - FEBRILE NEUTROPENIA [None]
  - HYPERBILIRUBINAEMIA [None]
  - HYPERHIDROSIS [None]
  - NASAL MUCOSAL HYPERTROPHY [None]
  - NAUSEA [None]
  - PERIPHERAL SENSORY NEUROPATHY [None]
  - PSEUDOMONAS INFECTION [None]
  - SINUS DISORDER [None]
  - SPUTUM CULTURE POSITIVE [None]
  - TRANSAMINASES INCREASED [None]
  - UPPER RESPIRATORY TRACT INFECTION [None]
  - VOMITING [None]
